FAERS Safety Report 8575461-7 (Version None)
Quarter: 2012Q3

REPORT INFORMATION
  Report Type: 
  Country: None (occurrence: None)
  Receive Date: 20120807
  Receipt Date: 20120801
  Transmission Date: 20120928
  Serious: Yes (Other)
  Sender: FDA-Public Use
  Company Number: PHEH2012US008482

PATIENT
  Sex: Female

DRUGS (3)
  1. CYTOMEL [Concomitant]
     Indication: THYROID DISORDER
     Route: 048
  2. RECLAST [Suspect]
     Indication: OSTEOPOROSIS
     Route: 042
     Dates: start: 20120410
  3. THYROID TAB [Concomitant]
     Indication: THYROID DISORDER
     Route: 048

REACTIONS (4)
  - PAIN IN EXTREMITY [None]
  - INFLUENZA LIKE ILLNESS [None]
  - NEUROPATHY PERIPHERAL [None]
  - ORAL DISCOMFORT [None]
